FAERS Safety Report 6159976-7 (Version None)
Quarter: 2009Q2

REPORT INFORMATION
  Report Type: 
  Country: None (occurrence: None)
  Receive Date: 20090420
  Receipt Date: 20090414
  Transmission Date: 20091009
  Serious: Yes (Life-Threatening, Hospitalization)
  Sender: FDA-Public Use
  Company Number: FR-ABBOTT-09P-056-0568093-00

PATIENT
  Sex: Female

DRUGS (6)
  1. HUMIRA [Suspect]
     Indication: CROHN'S DISEASE
     Dates: start: 20080407, end: 20081009
  2. HUMIRA [Suspect]
     Indication: ANKYLOSING SPONDYLITIS
  3. TAHOR [Concomitant]
     Indication: HYPERCHOLESTEROLAEMIA
  4. ACEBUTOLOL [Concomitant]
     Indication: HYPERTENSION
  5. HYDROCORTISONE [Concomitant]
     Indication: DRUG USE FOR UNKNOWN INDICATION
  6. DEBRIDAT [Concomitant]
     Indication: DRUG USE FOR UNKNOWN INDICATION

REACTIONS (3)
  - PROCTALGIA [None]
  - RECTAL HAEMORRHAGE [None]
  - RENAL CANCER [None]
